FAERS Safety Report 4892938-6 (Version None)
Quarter: 2006Q1

REPORT INFORMATION
  Report Type: 
  Country: None (occurrence: None)
  Receive Date: 20060126
  Receipt Date: 20051222
  Transmission Date: 20060701
  Serious: Yes (Hospitalization)
  Sender: FDA-Public Use
  Company Number: US-MERCK-0512USA03623

PATIENT
  Age: 60 Year
  Sex: Male
  Weight: 77 kg

DRUGS (6)
  1. VIOXX [Suspect]
     Indication: ARTHRITIS
     Route: 048
     Dates: start: 20030101, end: 20041101
  2. VIOXX [Suspect]
     Route: 048
     Dates: start: 20030101, end: 20041101
  3. [THERAPY UNSPECIFIED] [Concomitant]
     Route: 065
  4. MOTRIN [Concomitant]
     Route: 065
  5. [THERAPY UNSPECIFIED] [Concomitant]
     Route: 065
  6. IBUPROFEN [Concomitant]
     Route: 065

REACTIONS (2)
  - BACK INJURY [None]
  - MYOCARDIAL INFARCTION [None]
